FAERS Safety Report 10925470 (Version 1)
Quarter: 2015Q1

REPORT INFORMATION
  Report Type: Spontaneous
  Country: US (occurrence: US)
  Receive Date: 20150318
  Receipt Date: 20150318
  Transmission Date: 20150721
  Serious: Yes (Other)
  Sender: FDA-Public Use
  Company Number: US-PURDUE PHARMA-USA-2015-0121689

PATIENT
  Age: 57 Year
  Sex: Male
  Weight: 131 kg

DRUGS (3)
  1. OXYCONTIN [Suspect]
     Active Substance: OXYCODONE HYDROCHLORIDE
     Indication: SPINAL FRACTURE
     Dosage: 950 MG, BID
     Route: 065
  2. VIAGRA [Suspect]
     Active Substance: SILDENAFIL CITRATE
     Indication: PENIS DISORDER
     Dosage: 800 MG, UNK
     Route: 065
  3. KLONOPIN [Suspect]
     Active Substance: CLONAZEPAM
     Indication: FOOT FRACTURE
     Dosage: 230 MG, TID
     Route: 065

REACTIONS (2)
  - Chest discomfort [Unknown]
  - Priapism [Unknown]
